FAERS Safety Report 10027753 (Version 6)
Quarter: 2017Q3

REPORT INFORMATION
  Report Type: Spontaneous
  Country: US (occurrence: US)
  Receive Date: 20140321
  Receipt Date: 20170824
  Transmission Date: 20171127
  Serious: Yes (Death, Hospitalization, Other)
  Sender: FDA-Public Use
  Company Number: US-SANOFI-AVENTIS-2012SA003765

PATIENT
  Age: 70 Year
  Sex: Male

DRUGS (15)
  1. LEVOTHYROXINE. [Concomitant]
     Active Substance: LEVOTHYROXINE
  2. GLYBURIDE. [Concomitant]
     Active Substance: GLYBURIDE
  3. VYTORIN [Concomitant]
     Active Substance: EZETIMIBE\SIMVASTATIN
  4. NORVASC [Concomitant]
     Active Substance: AMLODIPINE BESYLATE
  5. NEURONTIN [Concomitant]
     Active Substance: GABAPENTIN
  6. PLAVIX [Suspect]
     Active Substance: CLOPIDOGREL BISULFATE
     Indication: CEREBROVASCULAR ACCIDENT
     Route: 048
     Dates: start: 1997
  7. PLAVIX [Suspect]
     Active Substance: CLOPIDOGREL BISULFATE
     Indication: TRANSIENT ISCHAEMIC ATTACK
     Route: 048
     Dates: start: 1997
  8. TEMAZEPAM. [Concomitant]
     Active Substance: TEMAZEPAM
  9. LASIX [Concomitant]
     Active Substance: FUROSEMIDE
  10. PLAVIX [Suspect]
     Active Substance: CLOPIDOGREL BISULFATE
     Indication: STENT PLACEMENT
     Route: 048
     Dates: start: 1997
  11. PLAVIX [Suspect]
     Active Substance: CLOPIDOGREL BISULFATE
     Indication: PERIPHERAL ARTERIAL OCCLUSIVE DISEASE
     Route: 048
     Dates: start: 1997
  12. ZOLOFT [Concomitant]
     Active Substance: SERTRALINE HYDROCHLORIDE
  13. LANTUS [Concomitant]
     Active Substance: INSULIN GLARGINE
  14. ASA [Concomitant]
     Active Substance: ASPIRIN
  15. HYDROCODONE [Concomitant]
     Active Substance: HYDROCODONE

REACTIONS (5)
  - Multiple injuries [Unknown]
  - Death [Fatal]
  - Haemorrhage [Unknown]
  - Gastrointestinal haemorrhage [Unknown]
  - Gastrointestinal disorder [Unknown]

NARRATIVE: CASE EVENT DATE: 20070415
